FAERS Safety Report 4764638-4 (Version None)
Quarter: 2005Q3

REPORT INFORMATION
  Report Type: 
  Country: None (occurrence: None)
  Receive Date: 20050909
  Receipt Date: 20050113
  Transmission Date: 20060218
  Serious: Yes (Hospitalization)
  Sender: FDA-Public Use
  Company Number: FR-GLAXOSMITHKLINE-B0364467B

PATIENT

DRUGS (6)
  1. RETROVIR [Suspect]
     Indication: ANTIVIRAL PROPHYLAXIS
     Dosage: 1.5MGK TWICE PER DAY
     Route: 048
  2. VIRAMUNE [Suspect]
     Indication: ANTIVIRAL PROPHYLAXIS
     Route: 048
  3. COMBIVIR [Suspect]
     Indication: HIV INFECTION
     Dates: start: 20040801
  4. RETROVIR [Suspect]
     Dates: start: 20040901, end: 20040901
  5. KALETRA [Suspect]
     Indication: HIV INFECTION
     Dates: start: 20040801
  6. QUINIMAX [Concomitant]
     Indication: PLASMODIUM FALCIPARUM INFECTION

REACTIONS (2)
  - ANAEMIA [None]
  - DRUG EXPOSURE DURING PREGNANCY [None]
